FAERS Safety Report 4717075-2 (Version None)
Quarter: 2005Q3

REPORT INFORMATION
  Report Type: 
  Country: None (occurrence: None)
  Receive Date: 20050719
  Receipt Date: 20050628
  Transmission Date: 20060218
  Serious: Yes (Hospitalization)
  Sender: FDA-Public Use
  Company Number: PHBS2005BR09389

PATIENT
  Age: 54 Year
  Sex: Female
  Weight: 103 kg

DRUGS (2)
  1. ETHINYL ESTRADIOL AND NORETHINDRONE [Suspect]
     Indication: HORMONE REPLACEMENT THERAPY
     Dosage: UNK, UNK
     Route: 062
  2. ASPIRINA [Concomitant]

REACTIONS (7)
  - BLEPHAROSPASM [None]
  - DEPRESSION [None]
  - DYSPHONIA [None]
  - EAR PAIN [None]
  - HEADACHE [None]
  - NECK PAIN [None]
  - VISUAL ACUITY REDUCED [None]
